FAERS Safety Report 11151850 (Version 4)
Quarter: 2015Q4

REPORT INFORMATION
  Report Type: Spontaneous
  Country: US (occurrence: US)
  Receive Date: 20150601
  Receipt Date: 20151117
  Transmission Date: 20160304
  Serious: Yes (Death, Hospitalization, Other)
  Sender: FDA-Public Use
  Company Number: US-PFIZER INC-2015180327

PATIENT
  Age: 76 Year
  Sex: Male
  Weight: 89 kg

DRUGS (11)
  1. LORATADINE. [Concomitant]
     Active Substance: LORATADINE
     Dosage: 10 MG, DAILY
     Route: 048
  2. SUTENT [Suspect]
     Active Substance: SUNITINIB MALATE
     Indication: METASTATIC RENAL CELL CARCINOMA
     Dosage: 50 MG, DAILY, 4 WEEKS ON, 2 WEEKS OFF
     Route: 048
     Dates: start: 20150501, end: 2015
  3. PRILOSEC [Concomitant]
     Active Substance: OMEPRAZOLE MAGNESIUM
     Indication: PEPTIC ULCER
     Dosage: 20 MG, 2X/DAY
     Route: 048
     Dates: start: 20150831
  4. WARFARIN [Concomitant]
     Active Substance: WARFARIN
     Indication: ATRIAL FLUTTER
     Dosage: 5 MG, DAILY
     Route: 048
  5. LEVOTHYROXINE. [Concomitant]
     Active Substance: LEVOTHYROXINE
     Dosage: 50 ?G, DAILY
     Route: 048
  6. POTASSIUM CHLORIDE. [Concomitant]
     Active Substance: POTASSIUM CHLORIDE
     Dosage: 20 MEQ, DAILY
     Route: 048
  7. FLOMAX [Concomitant]
     Active Substance: TAMSULOSIN HYDROCHLORIDE
     Dosage: 0.4 MG, DAILY
     Route: 048
  8. DIGOXIN. [Concomitant]
     Active Substance: DIGOXIN
     Dosage: 250 ?G, DAILY
     Route: 048
  9. WARFARIN [Concomitant]
     Active Substance: WARFARIN
     Dosage: 2.5 MG, DAILY
     Route: 048
  10. SUTENT [Suspect]
     Active Substance: SUNITINIB MALATE
     Dosage: 37.5 MG, 1X/DAY
     Route: 048
     Dates: start: 20150626, end: 20150913
  11. FUROSEMIDE. [Concomitant]
     Active Substance: FUROSEMIDE
     Dosage: 40 MG, 2X/DAY
     Route: 048

REACTIONS (22)
  - Disease progression [Fatal]
  - Tachypnoea [Unknown]
  - Nausea [Not Recovered/Not Resolved]
  - Thrombocytopenia [Recovered/Resolved]
  - Asthenia [Unknown]
  - Weight decreased [Unknown]
  - Decreased appetite [Unknown]
  - Lacrimation increased [Unknown]
  - Dehydration [Unknown]
  - Epigastric discomfort [Unknown]
  - Vomiting [Not Recovered/Not Resolved]
  - Pleural effusion [Unknown]
  - Anxiety [Unknown]
  - Urinary tract infection [Unknown]
  - Dysphagia [Unknown]
  - Metastatic renal cell carcinoma [Fatal]
  - Abdominal pain [Not Recovered/Not Resolved]
  - Dizziness [Unknown]
  - Hyperkalaemia [Unknown]
  - Fatigue [Unknown]
  - Urinary retention [Unknown]
  - Urine output decreased [Unknown]

NARRATIVE: CASE EVENT DATE: 2015
